FAERS Safety Report 7362325-X (Version None)
Quarter: 2011Q1

REPORT INFORMATION
  Report Type: 
  Country: None (occurrence: None)
  Receive Date: 20110309
  Receipt Date: 20110217
  Transmission Date: 20110831
  Serious: Yes (Hospitalization, Other)
  Sender: FDA-Public Use
  Company Number: JPI-P-006104

PATIENT
  Age: 49 Year
  Sex: Female

DRUGS (8)
  1. XYREM [Suspect]
     Indication: INSOMNIA
     Dosage: 4.5GM (2.25 GM, 2 IN 1 D), ORAL
     Route: 048
     Dates: start: 20051130
  2. XYREM [Suspect]
     Indication: INSOMNIA
     Dosage: 4.5GM (2.25 GM, 2 IN 1 D), ORAL
     Route: 048
     Dates: start: 20050309
  3. AMITRIPTYLINE [Suspect]
     Indication: PRODUCT USED FOR UNKNOWN INDICATION
  4. ZOLPIDEM TARTRATE [Suspect]
     Indication: PRODUCT USED FOR UNKNOWN INDICATION
     Dosage: 10 MG (10 MG, 1 IN 1 D)
  5. CARISOPRODOL [Suspect]
     Indication: PRODUCT USED FOR UNKNOWN INDICATION
  6. PREGABALIN [Concomitant]
  7. ASPIRIN [Concomitant]
  8. DIAZEPAM [Suspect]
     Indication: PRODUCT USED FOR UNKNOWN INDICATION

REACTIONS (21)
  - FEELING ABNORMAL [None]
  - ANKLE FRACTURE [None]
  - MEMORY IMPAIRMENT [None]
  - FALL [None]
  - CONVULSION [None]
  - APHASIA [None]
  - APNOEA [None]
  - LOSS OF CONSCIOUSNESS [None]
  - DRUG ABUSE [None]
  - THERMAL BURN [None]
  - SKIN GRAFT [None]
  - ABASIA [None]
  - RESPIRATORY DEPRESSION [None]
  - HYPOAESTHESIA [None]
  - INFECTIOUS MONONUCLEOSIS [None]
  - CONTUSION [None]
  - SWELLING [None]
  - INCORRECT DOSE ADMINISTERED [None]
  - COORDINATION ABNORMAL [None]
  - ENURESIS [None]
  - DYSPNOEA [None]
